FAERS Safety Report 4598109-5 (Version None)
Quarter: 2005Q1

REPORT INFORMATION
  Report Type: 
  Country: None (occurrence: None)
  Receive Date: 20050301
  Receipt Date: 20050301
  Transmission Date: 20050727
  Serious: No
  Sender: FDA-Public Use
  Company Number: None

PATIENT
  Age: 89 Year
  Sex: Male

DRUGS (1)
  1. ISOSORBIDE MONONITRATE [Suspect]
     Dosage: 1/2 TAB BY MOUTH 3 TIMES PER DAY AND AT BEDTIME
     Route: 048
     Dates: start: 20050126

REACTIONS (1)
  - PHARMACEUTICAL PRODUCT COMPLAINT [None]
